FAERS Safety Report 26019055 (Version 2)
Quarter: 2025Q4

REPORT INFORMATION
  Report Type: Report from Study
  Country: EU (occurrence: EU)
  Receive Date: 20251110
  Receipt Date: 20251209
  Transmission Date: 20260117
  Serious: Yes (Other)
  Sender: ROCHE
  Company Number: EU-ROCHE-3416418

PATIENT
  Age: 67 Year
  Sex: Female
  Weight: 67 kg

DRUGS (12)
  1. ATEZOLIZUMAB [Suspect]
     Active Substance: ATEZOLIZUMAB
     Indication: Non-small cell lung cancer metastatic
     Dosage: DOSE LAST STUDY DRUG ADMIN PRIOR AE IS 1200 MG ON 15-FEB-2023, 05/APR/2023
     Route: 042
     Dates: start: 20230103
  2. ATEZOLIZUMAB [Suspect]
     Active Substance: ATEZOLIZUMAB
     Dosage: DOSE LAST STUDY DRUG ADMIN PRIOR AE IS 1200 MG ON 15-FEB-2023, 05/APR/2023
     Route: 042
  3. IBUPROFEN [Concomitant]
     Active Substance: IBUPROFEN
     Dates: start: 20220729
  4. OLMESARTAN [Concomitant]
     Active Substance: OLMESARTAN
     Dates: start: 20200527
  5. HYDROXYZINE [Concomitant]
     Active Substance: HYDROXYZINE HYDROCHLORIDE
     Dates: start: 20230627
  6. OMEPRAZOLE [Concomitant]
     Active Substance: OMEPRAZOLE
     Dates: start: 20230118
  7. EDOXABAN [Concomitant]
     Active Substance: EDOXABAN
     Dates: start: 20231024, end: 20231122
  8. CODEINE [Concomitant]
     Active Substance: CODEINE
     Dates: start: 20231031, end: 20231122
  9. CIPROFLOXACIN [Concomitant]
     Active Substance: CIPROFLOXACIN
  10. ONDANSETRON [Concomitant]
     Active Substance: ONDANSETRON
  11. DEXAMETHASONE [Concomitant]
     Active Substance: DEXAMETHASONE
  12. HEPARIN [Concomitant]
     Active Substance: HEPARIN SODIUM

REACTIONS (2)
  - Autoimmune hypothyroidism [Not Recovered/Not Resolved]
  - Pruritus [Recovered/Resolved]

NARRATIVE: CASE EVENT DATE: 20230307
